FAERS Safety Report 10626742 (Version 2)
Quarter: 2015Q1

REPORT INFORMATION
  Report Type: Spontaneous
  Country: US (occurrence: US)
  Receive Date: 20141204
  Receipt Date: 20150123
  Transmission Date: 20150720
  Serious: No
  Sender: FDA-Public Use
  Company Number: US-009507513-1411USA009868

PATIENT
  Age: 26 Year
  Sex: Female
  Weight: 78.46 kg

DRUGS (1)
  1. NEXPLANON [Suspect]
     Active Substance: ETONOGESTREL
     Indication: CONTRACEPTION
     Dosage: 1 ROD/ 3 YEARS
     Route: 059
     Dates: start: 20140801, end: 20150116

REACTIONS (3)
  - Headache [Recovered/Resolved]
  - Depression [Not Recovered/Not Resolved]
  - Suprapubic pain [Recovered/Resolved]

NARRATIVE: CASE EVENT DATE: 201408
